FAERS Safety Report 7387864-7 (Version None)
Quarter: 2011Q1

REPORT INFORMATION
  Report Type: 
  Country: None (occurrence: None)
  Receive Date: 20110331
  Receipt Date: 20100826
  Transmission Date: 20110831
  Serious: Yes (Hospitalization, Other)
  Sender: FDA-Public Use
  Company Number: US-BAYER-201017151NA

PATIENT
  Sex: Female
  Weight: 86 kg

DRUGS (6)
  1. HYOSCYAMINE [Concomitant]
  2. YAZ [Suspect]
     Route: 048
  3. AZITHROMYCIN [Concomitant]
     Dates: start: 20080221, end: 20091002
  4. YASMIN [Suspect]
     Indication: CONTRACEPTION
     Route: 048
     Dates: start: 20070404, end: 20080831
  5. UNCODEABLE ^UNCLASSIFIABLE^ [Concomitant]
  6. FLUCONAZOLE [Concomitant]

REACTIONS (3)
  - GALLBLADDER CHOLESTEROLOSIS [None]
  - PAIN [None]
  - CHOLECYSTITIS CHRONIC [None]
